FAERS Safety Report 7241312-6 (Version None)
Quarter: 2011Q1

REPORT INFORMATION
  Report Type: 
  Country: None (occurrence: None)
  Receive Date: 20110124
  Receipt Date: 20110117
  Transmission Date: 20110831
  Serious: Yes (Life-Threatening, Hospitalization)
  Sender: FDA-Public Use
  Company Number: FR-ROCHE-750057

PATIENT
  Sex: Male
  Weight: 84 kg

DRUGS (8)
  1. ROACTEMRA [Suspect]
     Dosage: FORM: INFUSION. FREQUENCY: CYCLE.
     Route: 042
     Dates: start: 20101019, end: 20101019
  2. PRETERAX [Concomitant]
     Route: 048
  3. ROACTEMRA [Suspect]
     Indication: RHEUMATOID ARTHRITIS
     Route: 042
     Dates: start: 20100921
  4. ROACTEMRA [Suspect]
     Dosage: FREQUENCY: CYCLE
     Route: 042
     Dates: start: 20101116, end: 20101116
  5. PREVISCAN [Suspect]
     Indication: DEEP VEIN THROMBOSIS
     Dosage: 1 DOSE FORM, START DATE: A LONG TIME AGO
     Route: 048
  6. CRESTOR [Concomitant]
     Dosage: ROUTE: PER OS
     Route: 048
  7. PREDNISONE [Concomitant]
     Indication: RHEUMATOID ARTHRITIS
     Dosage: ROUTE: PER OS
     Route: 048
  8. ROACTEMRA [Suspect]
     Dosage: FREQUENCY: CYCLE
     Route: 042
     Dates: start: 20101214, end: 20101214

REACTIONS (2)
  - RECTAL HAEMORRHAGE [None]
  - MELAENA [None]
